FAERS Safety Report 16895946 (Version 1)
Quarter: 2019Q4

REPORT INFORMATION
  Report Type: Spontaneous
  Country: US (occurrence: US)
  Receive Date: 20191008
  Receipt Date: 20191008
  Transmission Date: 20200122
  Serious: No
  Sender: FDA-Public Use
  Company Number: US-PERRIGO-19US007207

PATIENT
  Age: 68 Year
  Sex: Female
  Weight: 72.56 kg

DRUGS (10)
  1. IMIQUIMOD. [Suspect]
     Active Substance: IMIQUIMOD
     Dosage: SMALL AMOUNT, 3 TIMES A WEEK
     Route: 061
     Dates: start: 201904, end: 201905
  2. IMIQUIMOD. [Suspect]
     Active Substance: IMIQUIMOD
     Indication: EXTRAMAMMARY PAGET^S DISEASE
     Dosage: SMALL AMOUNT, 5 TIMES A WEEK
     Route: 061
     Dates: start: 201902, end: 201903
  3. SIMVASTATIN. [Concomitant]
     Active Substance: SIMVASTATIN
     Indication: BLOOD CHOLESTEROL ABNORMAL
     Dosage: 10 MG, QD
     Route: 065
  4. CLONIDINE. [Concomitant]
     Active Substance: CLONIDINE
     Indication: HYPERTENSION
     Dosage: 0.1 MG, BID
     Route: 065
  5. LOSARTAN. [Concomitant]
     Active Substance: LOSARTAN
     Indication: HYPERTENSION
     Dosage: 100 MG, QD
     Route: 065
  6. IMIQUIMOD. [Suspect]
     Active Substance: IMIQUIMOD
     Dosage: SMALL AMOUNT, 2 TIMES A WEEK
     Route: 061
     Dates: start: 201905
  7. HYDROCHLOROTHIAZIDE. [Concomitant]
     Active Substance: HYDROCHLOROTHIAZIDE
     Indication: ELECTROLYTE IMBALANCE
     Dosage: 12.5 MG, QD
     Route: 065
     Dates: start: 2019
  8. HYDROCHLOROTHIAZIDE. [Concomitant]
     Active Substance: HYDROCHLOROTHIAZIDE
     Dosage: 12.5 MG, QD
     Route: 065
     Dates: start: 2019
  9. IMIQUIMOD. [Suspect]
     Active Substance: IMIQUIMOD
     Dosage: SMALL AMOUNT, 4 TIMES A WEEK
     Route: 061
     Dates: start: 201903, end: 201904
  10. HYDRALAZINE [Concomitant]
     Active Substance: HYDRALAZINE HYDROCHLORIDE
     Indication: HYPERTENSION
     Dosage: 25 MG, BID
     Route: 065

REACTIONS (2)
  - Off label use [Unknown]
  - Application site pain [Recovering/Resolving]

NARRATIVE: CASE EVENT DATE: 201902
